FAERS Safety Report 4798640-3 (Version None)
Quarter: 2005Q4

REPORT INFORMATION
  Report Type: 
  Country: None (occurrence: None)
  Receive Date: 20051014
  Receipt Date: 20051007
  Transmission Date: 20060501
  Serious: Yes (Other)
  Sender: FDA-Public Use
  Company Number: US-JNJFOC-20051002263

PATIENT
  Sex: Female

DRUGS (4)
  1. TYLENOL (CAPLET) [Suspect]
     Route: 048
  2. TYLENOL (CAPLET) [Suspect]
     Route: 048
  3. PREMARIN [Concomitant]
  4. ATENOLOL [Concomitant]

REACTIONS (3)
  - DYSPHAGIA [None]
  - FOREIGN BODY TRAUMA [None]
  - PHARYNGOLARYNGEAL PAIN [None]
